FAERS Safety Report 6796336-X (Version None)
Quarter: 2010Q2

REPORT INFORMATION
  Report Type: 
  Country: None (occurrence: None)
  Receive Date: 20100622
  Receipt Date: 20100607
  Transmission Date: 20101027
  Serious: Yes (Hospitalization)
  Sender: FDA-Public Use
  Company Number: 2010002290

PATIENT
  Age: 53 Year
  Sex: Female

DRUGS (5)
  1. ERLOTINIB (ERLOTINIB) (TABLET) (ERLOTINIB) [Suspect]
     Indication: NON-SMALL CELL LUNG CANCER
     Dosage: (QD), ORAL
     Route: 048
     Dates: start: 20100520
  2. GEMCITABINE [Suspect]
     Indication: NON-SMALL CELL LUNG CANCER
     Dosage: (2050 MG, QD), INTRAVENOUS
     Route: 042
     Dates: start: 20100211, end: 20100603
  3. CARBOPLATIN [Suspect]
     Indication: NON-SMALL CELL LUNG CANCER
     Dosage: (700 MG, QD), INTRAVENOUS
     Route: 042
     Dates: start: 20100211, end: 20100603
  4. LOSARTAN (LOSARTAN) [Concomitant]
  5. AMLODIPINE [Concomitant]

REACTIONS (1)
  - ANAEMIA [None]
